FAERS Safety Report 9196109 (Version 2)
Quarter: 2013Q2

REPORT INFORMATION
  Report Type: Spontaneous
  Country: IT (occurrence: IT)
  Receive Date: 20130328
  Receipt Date: 20130625
  Transmission Date: 20140414
  Serious: Yes (Hospitalization)
  Sender: FDA-Public Use
  Company Number: IT-SANOFI-AVENTIS-2013SA030580

PATIENT
  Age: 77 Year
  Sex: Female

DRUGS (2)
  1. LASIX [Suspect]
     Indication: PRODUCT USED FOR UNKNOWN INDICATION
     Route: 048
     Dates: start: 20130313, end: 20130313
  2. CARVASIN [Suspect]
     Indication: CHEST PAIN
     Route: 048
     Dates: start: 20130313, end: 20130313

REACTIONS (3)
  - Syncope [Recovering/Resolving]
  - Bradycardia [Recovering/Resolving]
  - Heart rate decreased [Recovering/Resolving]
